FAERS Safety Report 12882020 (Version 1)
Quarter: 2016Q4

REPORT INFORMATION
  Report Type: Spontaneous
  Country: US (occurrence: US)
  Receive Date: 20161025
  Receipt Date: 20161025
  Transmission Date: 20170207
  Serious: No
  Sender: FDA-Public Use
  Company Number: US-HORIZON-PEN-0503-2016

PATIENT
  Sex: Female

DRUGS (5)
  1. VICODIN [Concomitant]
     Active Substance: ACETAMINOPHEN\HYDROCODONE BITARTRATE
     Dates: start: 20161019, end: 20161019
  2. PRO-STATIN [Concomitant]
     Indication: BLOOD CHOLESTEROL
  3. PROGESTIN [Concomitant]
     Active Substance: PROGESTERONE
     Indication: HORMONE REPLACEMENT THERAPY
  4. PENNSAID [Suspect]
     Active Substance: DICLOFENAC SODIUM
     Indication: ARTHRALGIA
     Dosage: 2 PUMPS TWICE DAILY
     Dates: start: 20161017
  5. ESTROGEN [Concomitant]
     Active Substance: ESTRONE\SUS SCROFA OVARY
     Indication: HORMONE REPLACEMENT THERAPY

REACTIONS (3)
  - Off label use [Unknown]
  - Dizziness [Unknown]
  - Asthenia [Unknown]

NARRATIVE: CASE EVENT DATE: 20161020
